FAERS Safety Report 4333702-6 (Version None)
Quarter: 2004Q2

REPORT INFORMATION
  Report Type: 
  Country: None (occurrence: None)
  Receive Date: 20040406
  Receipt Date: 20040406
  Transmission Date: 20050107
  Serious: Yes (Hospitalization)
  Sender: FDA-Public Use
  Company Number: None

PATIENT
  Sex: Female
  Weight: 47.1741 kg

DRUGS (3)
  1. CARBOPLATIN [Suspect]
     Indication: LUNG NEOPLASM MALIGNANT
  2. TOPOTECAN [Suspect]
     Indication: LUNG NEOPLASM MALIGNANT
  3. ETOPOSIDE [Suspect]
     Indication: LUNG NEOPLASM MALIGNANT

REACTIONS (1)
  - FEBRILE NEUTROPENIA [None]
